FAERS Safety Report 15436246 (Version 10)
Quarter: 2021Q1

REPORT INFORMATION
  Report Type: Spontaneous
  Country: DE (occurrence: DE)
  Receive Date: 20180927
  Receipt Date: 20210216
  Transmission Date: 20210419
  Serious: Yes (Hospitalization, Other)
  Sender: FDA-Public Use
  Company Number: DE-ALEXION PHARMACEUTICALS INC.-A201812559

PATIENT
  Age: 2 Year
  Sex: Female
  Weight: 7.1 kg

DRUGS (11)
  1. STRENSIQ [Suspect]
     Active Substance: ASFOTASE ALFA
     Indication: HYPOPHOSPHATASIA
     Dosage: 5 MG/KG, TIW
     Route: 058
  2. STRENSIQ [Suspect]
     Active Substance: ASFOTASE ALFA
     Dosage: 3 MG/KG, UNK
     Route: 065
     Dates: end: 201802
  3. STRENSIQ [Suspect]
     Active Substance: ASFOTASE ALFA
     Dosage: 3 MG/KG, UNK
     Route: 065
     Dates: start: 20190821
  4. VITAMIN D NOS [Concomitant]
     Active Substance: VITAMIN D NOS
     Indication: PRODUCT USED FOR UNKNOWN INDICATION
     Route: 065
  5. STRENSIQ [Suspect]
     Active Substance: ASFOTASE ALFA
     Dosage: 2 MG/KG, UNK
     Route: 065
  6. STRENSIQ [Suspect]
     Active Substance: ASFOTASE ALFA
     Dosage: UNK, UNK
     Route: 065
     Dates: start: 201708, end: 202012
  7. STRENSIQ [Suspect]
     Active Substance: ASFOTASE ALFA
     Dosage: 2 MG/KG, UNK
     Route: 065
     Dates: start: 20190905
  8. SILDENAFIL. [Concomitant]
     Active Substance: SILDENAFIL
     Indication: PRODUCT USED FOR UNKNOWN INDICATION
     Dosage: UNK, QD
     Route: 065
  9. STRENSIQ [Suspect]
     Active Substance: ASFOTASE ALFA
     Dosage: 2.5 MG/KG, UNK
     Route: 065
     Dates: start: 201803, end: 201908
  10. STRENSIQ [Suspect]
     Active Substance: ASFOTASE ALFA
     Dosage: 2 MG/KG, UNK
     Route: 065
  11. STRENSIQ [Suspect]
     Active Substance: ASFOTASE ALFA
     Dosage: 2.5 MG/KG, UNK
     Route: 065
     Dates: start: 20170821

REACTIONS (26)
  - Nephrocalcinosis [Not Recovered/Not Resolved]
  - Influenza [Unknown]
  - Upper respiratory tract infection [Unknown]
  - Blood alkaline phosphatase increased [Not Recovered/Not Resolved]
  - Osteopenia [Unknown]
  - Pulmonary hypertension [Not Recovered/Not Resolved]
  - Blood ketone body present [Unknown]
  - Drug specific antibody [Unknown]
  - Enteritis [Recovered/Resolved]
  - Abdominal pain [Unknown]
  - Inability to crawl [Not Recovered/Not Resolved]
  - Craniosynostosis [Not Recovered/Not Resolved]
  - Bone deformity [Not Recovered/Not Resolved]
  - Norovirus test positive [Unknown]
  - Skull malformation [Not Recovered/Not Resolved]
  - Pain [Unknown]
  - Fracture [Not Recovered/Not Resolved]
  - Vomiting [Recovered/Resolved]
  - Urine ketone body present [Unknown]
  - Upper limb fracture [Not Recovered/Not Resolved]
  - Musculoskeletal pain [Unknown]
  - Selective eating disorder [Recovered/Resolved]
  - Hyponatraemia [Unknown]
  - Intraocular pressure increased [Recovering/Resolving]
  - Humerus fracture [Not Recovered/Not Resolved]
  - Psychomotor skills impaired [Unknown]

NARRATIVE: CASE EVENT DATE: 20180902
